FAERS Safety Report 9498882 (Version 1)
Quarter: 2013Q3

REPORT INFORMATION
  Report Type: Spontaneous
  Country: US (occurrence: None)
  Receive Date: 20130830
  Receipt Date: 20130830
  Transmission Date: 20140515
  Serious: Yes (Hospitalization)
  Sender: FDA-Public Use
  Company Number: 2013P1018719

PATIENT
  Age: 57 Year
  Sex: Female

DRUGS (8)
  1. VALPROATE SODIUM [Suspect]
     Indication: GRAND MAL CONVULSION
     Dosage: 500 MG; X3; IV
     Dates: start: 20130814, end: 20130815
  2. KEPPRA [Suspect]
     Dosage: 1000MG; Q12H; IV
     Dates: start: 20130814
  3. LOVENOX [Concomitant]
  4. LACTULOSE [Concomitant]
  5. MIRALAX [Concomitant]
  6. SENNA [Concomitant]
  7. LORAZEPAM [Concomitant]
  8. NORMAL SALINE [Concomitant]

REACTIONS (6)
  - Catheter site related reaction [None]
  - Infusion site extravasation [None]
  - Infusion site swelling [None]
  - Infusion site ulcer [None]
  - Infusion site erythema [None]
  - Infusion site erosion [None]
